FAERS Safety Report 6579887-2 (Version None)
Quarter: 2010Q1

REPORT INFORMATION
  Report Type: 
  Country: None (occurrence: None)
  Receive Date: 20100212
  Receipt Date: 20100201
  Transmission Date: 20100710
  Serious: No
  Sender: FDA-Public Use
  Company Number: FR-ELI_LILLY_AND_COMPANY-FR200910004287

PATIENT
  Age: 67 Year
  Sex: Female

DRUGS (7)
  1. FORTEO [Suspect]
     Indication: OSTEOPOROSIS
     Dosage: 20 UG, DAILY (1/D)
     Route: 058
     Dates: start: 20090926, end: 20091004
  2. CORDARONE [Concomitant]
     Dosage: UNK, UNKNOWN
     Route: 065
  3. PREVISCAN [Concomitant]
     Dosage: UNK, UNKNOWN
     Route: 065
  4. BETA BLOCKING AGENTS [Concomitant]
     Dosage: UNK, UNKNOWN
     Route: 065
  5. DOLIPRANE [Concomitant]
     Indication: PAIN
     Route: 048
     Dates: start: 20090601
  6. TOPALGIC [Concomitant]
     Indication: PAIN
     Dosage: 2 D/F, UNK
     Dates: start: 20090601
  7. TEMESTA [Concomitant]
     Route: 048
     Dates: start: 20071201

REACTIONS (6)
  - ARRHYTHMIA [None]
  - HEADACHE [None]
  - INTERNATIONAL NORMALISED RATIO DECREASED [None]
  - NAUSEA [None]
  - STRESS [None]
  - VERTIGO [None]
